FAERS Safety Report 8097493-8 (Version None)
Quarter: 2012Q1

REPORT INFORMATION
  Report Type: 
  Country: None (occurrence: None)
  Receive Date: 20120129
  Receipt Date: 20111121
  Transmission Date: 20120608
  Serious: No
  Sender: FDA-Public Use
  Company Number: US-ABBOTT-11P-163-0876618-00

PATIENT
  Sex: Female
  Weight: 74.002 kg

DRUGS (3)
  1. HUMIRA [Suspect]
     Indication: PSORIATIC ARTHROPATHY
     Route: 058
     Dates: start: 20101001, end: 20110301
  2. HUMIRA [Suspect]
     Dates: start: 20111101
  3. ADDERALL 5 [Concomitant]
     Indication: PRODUCT USED FOR UNKNOWN INDICATION

REACTIONS (3)
  - PSORIATIC ARTHROPATHY [None]
  - INJECTION SITE PAIN [None]
  - SINUSITIS [None]
